FAERS Safety Report 6525835-0 (Version None)
Quarter: 2010Q1

REPORT INFORMATION
  Report Type: 
  Country: None (occurrence: None)
  Receive Date: 20100104
  Receipt Date: 20091223
  Transmission Date: 20100710
  Serious: Yes (Other)
  Sender: FDA-Public Use
  Company Number: B0616593A

PATIENT
  Sex: Male

DRUGS (5)
  1. AVOLVE [Suspect]
     Indication: BENIGN PROSTATIC HYPERPLASIA
     Dosage: .5MG PER DAY
     Route: 048
     Dates: start: 20091016, end: 20091102
  2. HARNAL D [Concomitant]
     Indication: BENIGN PROSTATIC HYPERPLASIA
     Dosage: .2MG PER DAY
     Route: 048
  3. EVIPROSTAT [Concomitant]
     Route: 048
     Dates: start: 20091201
  4. CHINESE MEDICINE [Concomitant]
     Dosage: 7.5G PER DAY
     Route: 048
     Dates: start: 20091201
  5. CHINESE MEDICINE [Concomitant]
     Dosage: 7.5G PER DAY
     Route: 048
     Dates: start: 20091215

REACTIONS (1)
  - ERECTILE DYSFUNCTION [None]
